FAERS Safety Report 7582304-7 (Version None)
Quarter: 2011Q2

REPORT INFORMATION
  Report Type: 
  Country: None (occurrence: None)
  Receive Date: 20110630
  Receipt Date: 20110616
  Transmission Date: 20111010
  Serious: Yes (Hospitalization, Other)
  Sender: FDA-Public Use
  Company Number: US-BAYER-201039947NA

PATIENT
  Age: 40 Year
  Sex: Female
  Weight: 70 kg

DRUGS (6)
  1. ADVAIR DISKUS 100/50 [Concomitant]
     Indication: ASTHMA
     Dosage: UNK UNK, PRN
     Dates: start: 20020520, end: 20090225
  2. BUSPIRONE HCL [Concomitant]
     Indication: ANXIETY
     Dosage: UNK
     Dates: start: 20041208, end: 20050523
  3. DIAZEPAM [Concomitant]
     Indication: ANXIETY
     Dosage: 10 MG, UNK
     Dates: start: 20050104, end: 20051128
  4. ALBUTEROL SULFATE AUTOHALER [Concomitant]
     Indication: ASTHMA
     Dosage: 90 ?G, UNK
     Dates: start: 20050107, end: 20051211
  5. YASMIN [Suspect]
     Indication: CONTRACEPTION
     Dosage: UNK UNK, QD
     Dates: start: 20020816, end: 20050128
  6. MORPHINE SULFATE [Concomitant]
     Indication: PAIN
     Dosage: 15 MG, PRN
     Dates: start: 20040618, end: 20051123

REACTIONS (1)
  - PULMONARY EMBOLISM [None]
